FAERS Safety Report 9202334 (Version 2)
Quarter: 2013Q2

REPORT INFORMATION
  Report Type: Spontaneous
  Country: IE (occurrence: IE)
  Receive Date: 20130401
  Receipt Date: 20130514
  Transmission Date: 20140414
  Serious: Yes (Death)
  Sender: FDA-Public Use
  Company Number: IE-BAXTER-2013BAX011506

PATIENT
  Age: 8 Year
  Sex: Female

DRUGS (2)
  1. ENDOXANA INJECTION 500MG [Suspect]
     Indication: HISTIOCYTOSIS HAEMATOPHAGIC
     Dates: start: 20110519, end: 20110713
  2. ENDOXANA INJECTION 500MG [Suspect]
     Dates: start: 20121223

REACTIONS (19)
  - Multi-organ failure [Fatal]
  - Sepsis [Fatal]
  - Neutropenic sepsis [Recovered/Resolved]
  - Antibody test abnormal [Unknown]
  - Systemic lupus erythematosus [None]
  - Hepatic function abnormal [None]
  - Pancreatitis acute [None]
  - Bradycardia [None]
  - Consciousness fluctuating [None]
  - Immunosuppression [None]
  - Enterococcus test positive [None]
  - Candida test positive [None]
  - Pseudomonas test positive [None]
  - Cytomegalovirus test positive [None]
  - Haemodialysis [None]
  - Labile blood pressure [None]
  - Hydrocephalus [None]
  - Brain death [None]
  - Aspergillus infection [None]
